FAERS Safety Report 8481724-6 (Version None)
Quarter: 2012Q2

REPORT INFORMATION
  Report Type: 
  Country: None (occurrence: None)
  Receive Date: 20120402
  Receipt Date: 20090811
  Transmission Date: 20120825
  Serious: Yes (Hospitalization, Other)
  Sender: FDA-Public Use
  Company Number: PHEH2009US09216

PATIENT
  Sex: Female

DRUGS (3)
  1. AMLODIPINE [Concomitant]
  2. EXFORGE HCT [Suspect]
  3. TEKTURNA [Suspect]
     Dosage: 30 MG

REACTIONS (2)
  - COUGH [None]
  - HAEMOPTYSIS [None]
